FAERS Safety Report 8247487-4 (Version None)
Quarter: 2012Q1

REPORT INFORMATION
  Report Type: 
  Country: None (occurrence: None)
  Receive Date: 20120330
  Receipt Date: 20120315
  Transmission Date: 20120608
  Serious: Yes (Death, Other)
  Sender: FDA-Public Use
  Company Number: ES-CELGENEUS-144-50794-12031921

PATIENT
  Sex: Male

DRUGS (3)
  1. DARBEPOETIN [Concomitant]
     Route: 065
  2. VIDAZA [Suspect]
     Route: 065
     Dates: start: 20101025, end: 20111011
  3. NEUPOGEN [Concomitant]
     Route: 065

REACTIONS (4)
  - PANCYTOPENIA [None]
  - NEUTROPENIA [None]
  - TREATMENT FAILURE [None]
  - MYELODYSPLASTIC SYNDROME [None]
